FAERS Safety Report 11938774 (Version 1)
Quarter: 2016Q1

REPORT INFORMATION
  Report Type: Report from Study
  Country: BR (occurrence: BR)
  Receive Date: 20160122
  Receipt Date: 20160122
  Transmission Date: 20160526
  Serious: Yes (Hospitalization, Other)
  Sender: FDA-Public Use
  Company Number: BR-BAYER-2016-008741

PATIENT
  Sex: Female

DRUGS (1)
  1. BETAFERON [Suspect]
     Active Substance: INTERFERON BETA-1B
     Indication: MULTIPLE SCLEROSIS
     Dosage: UNK
     Route: 058
     Dates: start: 20040310

REACTIONS (7)
  - Discomfort [None]
  - Malaise [None]
  - Lung disorder [None]
  - Feeling abnormal [None]
  - Confusional state [None]
  - Hospitalisation [None]
  - Aphasia [None]

NARRATIVE: CASE EVENT DATE: 2016
